FAERS Safety Report 5113625-5 (Version None)
Quarter: 2006Q3

REPORT INFORMATION
  Report Type: 
  Country: None (occurrence: None)
  Receive Date: 20060925
  Receipt Date: 20060830
  Transmission Date: 20061208
  Serious: Yes (Death)
  Sender: FDA-Public Use
  Company Number: US-BAYER-200613701BCC

PATIENT
  Age: 32 Year
  Sex: Female

DRUGS (2)
  1. ALKA-SELTZER GOLD ANTACID [Suspect]
     Indication: RESTLESS LEGS SYNDROME
     Route: 048
     Dates: start: 19610101, end: 19710101
  2. TAMOXIFEN CITRATE [Concomitant]

REACTIONS (2)
  - BREAST CANCER METASTATIC [None]
  - RESTLESS LEGS SYNDROME [None]
